FAERS Safety Report 13698960 (Version 1)
Quarter: 2017Q2

REPORT INFORMATION
  Report Type: Spontaneous
  Country: None (occurrence: DK)
  Receive Date: 20170628
  Receipt Date: 20170628
  Transmission Date: 20170830
  Serious: Yes (Death)
  Sender: FDA-Public Use
  Company Number: DK-ALSI-201000063

PATIENT
  Age: 4 Decade
  Sex: Female

DRUGS (1)
  1. 100% OXYGEN [Suspect]
     Active Substance: OXYGEN
     Indication: OXYGEN THERAPY
     Route: 055
     Dates: start: 20100429

REACTIONS (6)
  - Condition aggravated [Fatal]
  - Accidental underdose [Fatal]
  - Coma [Fatal]
  - Cardiac arrest [Fatal]
  - Carbon dioxide increased [Fatal]
  - Wrong technique in product usage process [Fatal]
